FAERS Safety Report 16977552 (Version 1)
Quarter: 2019Q4

REPORT INFORMATION
  Report Type: Spontaneous
  Country: US (occurrence: US)
  Receive Date: 20191031
  Receipt Date: 20191031
  Transmission Date: 20200122
  Serious: No
  Sender: FDA-Public Use
  Company Number: US-TEVA-2019-US-1127796

PATIENT
  Sex: Female
  Weight: 57 kg

DRUGS (6)
  1. MELATONIN [Concomitant]
     Active Substance: MELATONIN
  2. LINZESS [Concomitant]
     Active Substance: LINACLOTIDE
  3. AJOVY [Suspect]
     Active Substance: FREMANEZUMAB-VFRM
     Indication: MIGRAINE
     Dosage: STARTED AROUND 06-JUN-2019. 3 INJECTIONS INTO THE ABDOMEN QUARTERLY.
     Dates: start: 20190606
  4. FAMOTIDINE. [Concomitant]
     Active Substance: FAMOTIDINE
  5. RELPAX [Concomitant]
     Active Substance: ELETRIPTAN HYDROBROMIDE
  6. VITAMINE D [Concomitant]
     Active Substance: CHOLECALCIFEROL

REACTIONS (2)
  - Obstruction [Recovering/Resolving]
  - Meniscus injury [Unknown]

NARRATIVE: CASE EVENT DATE: 2019
